FAERS Safety Report 5839294-4 (Version None)
Quarter: 2008Q3

REPORT INFORMATION
  Report Type: 
  Country: None (occurrence: None)
  Receive Date: 20080808
  Receipt Date: 20080731
  Transmission Date: 20090109
  Serious: Yes (Other)
  Sender: FDA-Public Use
  Company Number: US-PFIZER INC-2008063928

PATIENT
  Age: 86 Year
  Sex: Female

DRUGS (3)
  1. SU-011,248 [Suspect]
     Indication: BREAST CANCER
     Dates: start: 20071026, end: 20080201
  2. CYCLOPHOSPHAMIDE [Suspect]
     Indication: BREAST CANCER
     Dates: start: 20071026, end: 20080201
  3. METHOTREXATE [Suspect]
     Indication: BREAST CANCER
     Dates: start: 20071026, end: 20080201

REACTIONS (1)
  - SUBDURAL HAEMATOMA [None]
